FAERS Safety Report 9339203 (Version 3)
Quarter: 2013Q3

REPORT INFORMATION
  Report Type: Spontaneous
  Country: US (occurrence: US)
  Receive Date: 20130610
  Receipt Date: 20130702
  Transmission Date: 20140515
  Serious: Yes (Other)
  Sender: FDA-Public Use
  Company Number: US-PFIZER INC-2013171752

PATIENT
  Age: 47 Year
  Sex: Female

DRUGS (1)
  1. LYRICA [Suspect]
     Dosage: UNK

REACTIONS (23)
  - Sjogren^s syndrome [Unknown]
  - Rheumatoid arthritis [Unknown]
  - Fibromyalgia [Unknown]
  - Arthritis [Unknown]
  - Osteoarthritis [Unknown]
  - Visual impairment [Unknown]
  - Myalgia [Unknown]
  - Pain in extremity [Unknown]
  - Restless legs syndrome [Unknown]
  - Blood pressure increased [Unknown]
  - Thyroid disorder [Unknown]
  - Myoclonus [Unknown]
  - Migraine [Unknown]
  - Nail disorder [Unknown]
  - Fatigue [Unknown]
  - Pain [Unknown]
  - Balance disorder [Unknown]
  - Drug ineffective [Unknown]
  - Memory impairment [Unknown]
  - Asthenia [Unknown]
  - Confusional state [Unknown]
  - Fall [Unknown]
  - Reading disorder [Unknown]
